FAERS Safety Report 16463924 (Version 1)
Quarter: 2019Q2

REPORT INFORMATION
  Report Type: Not Available
  Country: US (occurrence: US)
  Receive Date: 20190621
  Receipt Date: 20190621
  Transmission Date: 20190711
  Serious: Yes (Death)
  Sender: FDA-Public Use
  Company Number: US-NEUROCRINE BIOSCIENCES INC.-2019NBI01596

PATIENT
  Sex: Female

DRUGS (7)
  1. CEFDINIR. [Concomitant]
     Active Substance: CEFDINIR
  2. PROTONIX [Concomitant]
     Active Substance: PANTOPRAZOLE SODIUM
  3. INGREZZA [Suspect]
     Active Substance: VALBENAZINE
     Indication: TARDIVE DYSKINESIA
     Route: 048
     Dates: start: 20180117, end: 20180124
  4. ELIQUIS [Concomitant]
     Active Substance: APIXABAN
  5. COZAAR [Concomitant]
     Active Substance: LOSARTAN POTASSIUM
  6. INGREZZA [Suspect]
     Active Substance: VALBENAZINE
     Route: 048
     Dates: start: 20180126
  7. LASIX [Concomitant]
     Active Substance: FUROSEMIDE

REACTIONS (1)
  - Seizure [Fatal]
